FAERS Safety Report 12924539 (Version 1)
Quarter: 2016Q4

REPORT INFORMATION
  Report Type: Spontaneous
  Country: US (occurrence: US)
  Receive Date: 20161108
  Receipt Date: 20161108
  Transmission Date: 20170207
  Serious: Yes (Hospitalization, Other)
  Sender: FDA-Public Use
  Company Number: US-PFIZER INC-3041458

PATIENT
  Age: 48 Year
  Sex: Male
  Weight: 77 kg

DRUGS (5)
  1. VFEND [Suspect]
     Active Substance: VORICONAZOLE
     Indication: BACTERIAL INFECTION
  2. AMIKACIN SULFATE. [Suspect]
     Active Substance: AMIKACIN SULFATE
     Indication: BACTERIAL INFECTION
     Dosage: UNK UNK, 1X/DAY
     Route: 042
     Dates: start: 2013, end: 2014
  3. CEFOXITIN SODIUM [Suspect]
     Active Substance: CEFOXITIN SODIUM
     Indication: BACTERIAL INFECTION
     Dosage: UNK UNK, 3X/DAY (EVERY 8 HOURS)
     Route: 042
     Dates: start: 2013, end: 2014
  4. VFEND [Suspect]
     Active Substance: VORICONAZOLE
     Indication: ANTIBIOTIC THERAPY
     Dosage: 200 MG, 2X/DAY
     Route: 048
  5. XANAX [Concomitant]
     Active Substance: ALPRAZOLAM
     Indication: ANXIETY
     Dosage: UNK

REACTIONS (7)
  - Arthritis bacterial [Unknown]
  - Joint swelling [Unknown]
  - Myalgia [Unknown]
  - Leg amputation [Unknown]
  - Skin cancer [Unknown]
  - Deafness bilateral [Not Recovered/Not Resolved]
  - Precancerous skin lesion [Unknown]

NARRATIVE: CASE EVENT DATE: 2013
